FAERS Safety Report 7506050-0 (Version None)
Quarter: 2011Q2

REPORT INFORMATION
  Report Type: 
  Country: None (occurrence: None)
  Receive Date: 20110526
  Receipt Date: 20110516
  Transmission Date: 20111010
  Serious: Yes (Hospitalization)
  Sender: FDA-Public Use
  Company Number: PHHY2011US29908

PATIENT
  Sex: Female
  Weight: 115.65 kg

DRUGS (1)
  1. GILENYA [Suspect]
     Indication: MULTIPLE SCLEROSIS
     Dosage: 0.5 MG, DAILY
     Route: 048
     Dates: start: 20110317, end: 20110421

REACTIONS (4)
  - GASTRITIS [None]
  - NAUSEA [None]
  - URINARY TRACT INFECTION [None]
  - DEHYDRATION [None]
